FAERS Safety Report 7788313-7 (Version None)
Quarter: 2011Q3

REPORT INFORMATION
  Report Type: 
  Country: None (occurrence: None)
  Receive Date: 20110930
  Receipt Date: 20110922
  Transmission Date: 20111222
  Serious: Yes (Other)
  Sender: FDA-Public Use
  Company Number: US-ASTELLAS-2011US006145

PATIENT
  Age: 71 Year
  Sex: Male

DRUGS (1)
  1. AMBISOME [Suspect]
     Indication: HISTOPLASMOSIS DISSEMINATED
     Dosage: UNK
     Route: 042

REACTIONS (2)
  - HYPOTENSION [None]
  - ACUTE MYOCARDIAL INFARCTION [None]
